FAERS Safety Report 4575635-6 (Version None)
Quarter: 2005Q1

REPORT INFORMATION
  Report Type: 
  Country: None (occurrence: None)
  Receive Date: 20050209
  Receipt Date: 20050128
  Transmission Date: 20050727
  Serious: Yes (Hospitalization)
  Sender: FDA-Public Use
  Company Number: AU-GLAXOSMITHKLINE-B0369999A

PATIENT
  Age: 50 Year

DRUGS (1)
  1. IMIGRAN [Suspect]
     Indication: MIGRAINE

REACTIONS (1)
  - DRUG WITHDRAWAL HEADACHE [None]
